FAERS Safety Report 6022620-3 (Version None)
Quarter: 2008Q4

REPORT INFORMATION
  Report Type: 
  Country: None (occurrence: None)
  Receive Date: 20081221
  Receipt Date: 20081221
  Transmission Date: 20090506
  Serious: No
  Sender: FDA-Public Use
  Company Number: None

PATIENT
  Sex: Female
  Weight: 69.91 kg

DRUGS (11)
  1. FOSAMAX [Suspect]
     Dosage: 70MG TABLET 70 MG QWEEK ORAL
     Route: 048
     Dates: start: 20080207, end: 20081222
  2. ACTONEL [Concomitant]
  3. CA/MVI [Concomitant]
  4. ENBREL [Concomitant]
  5. FERROUS SULFATE TAB [Concomitant]
  6. FOLIC ACID [Concomitant]
  7. LIPITOR [Concomitant]
  8. METHOTREXATE [Concomitant]
  9. NAPROXEN [Concomitant]
  10. TENORMIN [Concomitant]
  11. TOBRAMYCIN 0.3% OPHT SOLN [Concomitant]

REACTIONS (2)
  - DRUG INTOLERANCE [None]
  - GASTROINTESTINAL DISORDER [None]
